FAERS Safety Report 12487997 (Version 1)
Quarter: 2016Q2

REPORT INFORMATION
  Report Type: Spontaneous
  Country: US (occurrence: US)
  Receive Date: 20160622
  Receipt Date: 20160622
  Transmission Date: 20160815
  Serious: Yes (Other)
  Sender: FDA-Public Use
  Company Number: US-ACTAVIS-2016-12451

PATIENT
  Sex: Female

DRUGS (1)
  1. NEXT CHOICE ONE DOSE [Suspect]
     Active Substance: LEVONORGESTREL
     Indication: CONTRACEPTION
     Route: 065

REACTIONS (2)
  - Pregnancy after post coital contraception [Unknown]
  - Drug ineffective [Unknown]
